FAERS Safety Report 11184378 (Version 2)
Quarter: 2015Q2

REPORT INFORMATION
  Report Type: Spontaneous
  Country: US (occurrence: US)
  Receive Date: 20150612
  Receipt Date: 20150616
  Transmission Date: 20150821
  Serious: No
  Sender: FDA-Public Use
  Company Number: US-009507513-1506USA004864

PATIENT
  Age: 65 Year
  Sex: Female

DRUGS (2)
  1. ACTOS [Concomitant]
     Active Substance: PIOGLITAZONE HYDROCHLORIDE
     Dosage: UNKNOWN
  2. JANUVIA [Suspect]
     Active Substance: SITAGLIPTIN PHOSPHATE
     Indication: TYPE 2 DIABETES MELLITUS
     Dosage: ONE A DAY
     Route: 048

REACTIONS (8)
  - Cyst [Not Recovered/Not Resolved]
  - Peripheral coldness [Recovering/Resolving]
  - Chills [Recovering/Resolving]
  - Eye swelling [Recovering/Resolving]
  - Urticaria [Recovering/Resolving]
  - Rash pruritic [Recovering/Resolving]
  - Nasal dryness [Recovering/Resolving]
  - Abnormal dreams [Recovering/Resolving]

NARRATIVE: CASE EVENT DATE: 20150523
